FAERS Safety Report 11491898 (Version 1)
Quarter: 2015Q3

REPORT INFORMATION
  Report Type: Spontaneous
  Country: US (occurrence: None)
  Receive Date: 20150910
  Receipt Date: 20150910
  Transmission Date: 20151125
  Serious: No
  Sender: FDA-Public Use
  Company Number: None

PATIENT

DRUGS (3)
  1. METFORMIN [Suspect]
     Active Substance: METFORMIN HYDROCHLORIDE
  2. NAPROXON [Suspect]
     Active Substance: NAPROXEN
  3. GLIPIZIDE. [Suspect]
     Active Substance: GLIPIZIDE

REACTIONS (4)
  - Toxicity to various agents [None]
  - Pain [None]
  - Hallucination [None]
  - Hip arthroplasty [None]
